FAERS Safety Report 8952631 (Version 1)
Quarter: 2012Q4

REPORT INFORMATION
  Report Type: 
  Country: US (occurrence: US)
  Receive Date: 20121205
  Receipt Date: 20121205
  Transmission Date: 20130627
  Serious: No
  Sender: FDA-Public Use
  Company Number: US-VERTEX PHARMACEUTICALS INC.-2012-025597

PATIENT
  Sex: Male
  Weight: 104 kg

DRUGS (6)
  1. INCIVEK [Suspect]
     Indication: HEPATITIS C
     Dosage: 750 mg, tid
     Route: 048
     Dates: start: 201210
  2. PEGASYS [Suspect]
     Indication: HEPATITIS C
     Dosage: 180 ?g, qw
     Route: 058
     Dates: start: 201210
  3. COPEGUS [Suspect]
     Indication: HEPATITIS C
     Dosage: 800 mg am and 600 mg pm
     Dates: start: 201210
  4. LISINOPRIL [Concomitant]
     Indication: HYPERTENSION
  5. CELEXA                             /00582602/ [Concomitant]
     Indication: DEPRESSION
  6. TEMAZEPAM [Concomitant]
     Indication: SLEEP DISORDER

REACTIONS (4)
  - Mass [Not Recovered/Not Resolved]
  - Anxiety [Not Recovered/Not Resolved]
  - Hostility [Not Recovered/Not Resolved]
  - Stomatitis [Not Recovered/Not Resolved]
